FAERS Safety Report 11919972 (Version 1)
Quarter: 2016Q1

REPORT INFORMATION
  Report Type: Spontaneous
  Country: CZ (occurrence: CZ)
  Receive Date: 20160115
  Receipt Date: 20160115
  Transmission Date: 20160526
  Serious: Yes (Death, Hospitalization)
  Sender: FDA-Public Use
  Company Number: CZ-ASTRAZENECA-2016SE02836

PATIENT
  Sex: Female
  Weight: 69 kg

DRUGS (2)
  1. RIBOCIKLIB [Concomitant]
     Indication: BREAST CANCER
     Dosage: 2X (TWO TIMES) - 21 DAYS APART
  2. FASLODEX [Suspect]
     Active Substance: FULVESTRANT
     Indication: BREAST CANCER
     Route: 030

REACTIONS (1)
  - Blood bilirubin increased [Fatal]

NARRATIVE: CASE EVENT DATE: 20151226
